FAERS Safety Report 15199448 (Version 2)
Quarter: 2018Q3

REPORT INFORMATION
  Report Type: Report from Study
  Country: None (occurrence: ES)
  Receive Date: 20180725
  Receipt Date: 20180821
  Transmission Date: 20181010
  Serious: Yes (Hospitalization)
  Sender: FDA-Public Use
  Company Number: ES-ABBVIE-18P-144-2425081-00

PATIENT
  Age: 29 Year
  Sex: Male

DRUGS (4)
  1. URSOBILANE [Concomitant]
     Indication: PROPHYLAXIS
  2. HUMIRA [Suspect]
     Active Substance: ADALIMUMAB
     Indication: COLITIS ULCERATIVE
     Route: 058
     Dates: start: 20141217, end: 20150408
  3. URSOBILANE [Concomitant]
     Indication: PROPHYLAXIS
     Route: 048
     Dates: start: 20170720
  4. VEDOLIZUMAB [Concomitant]
     Active Substance: VEDOLIZUMAB
     Indication: COLITIS ULCERATIVE
     Dosage: EACH 8 WEEKS
     Route: 042
     Dates: start: 20170119

REACTIONS (1)
  - Sarcoidosis [Not Recovered/Not Resolved]

NARRATIVE: CASE EVENT DATE: 20180711
